FAERS Safety Report 18628210 (Version 1)
Quarter: 2020Q4

REPORT INFORMATION
  Report Type: Spontaneous
  Country: FR (occurrence: FR)
  Receive Date: 20201217
  Receipt Date: 20201217
  Transmission Date: 20210114
  Serious: Yes (Hospitalization, Other)
  Sender: FDA-Public Use
  Company Number: FR-009507513-2012FRA006814

PATIENT
  Age: 62 Year
  Sex: Male

DRUGS (5)
  1. PEGASYS [Suspect]
     Active Substance: PEGINTERFERON ALFA-2A
     Dosage: UNK
     Dates: start: 20130214, end: 20130416
  2. DACLATASVIR. [Suspect]
     Active Substance: DACLATASVIR
     Dosage: UNK
     Dates: start: 20130214, end: 20130418
  3. SOVALDI [Suspect]
     Active Substance: SOFOSBUVIR
     Dosage: UNK
     Dates: start: 20140930, end: 20150315
  4. RIBAVIRIN. [Suspect]
     Active Substance: RIBAVIRIN
     Dosage: UNK
     Route: 048
     Dates: start: 20130214, end: 20130416
  5. DACLATASVIR. [Suspect]
     Active Substance: DACLATASVIR
     Dosage: UNK
     Dates: start: 20140930, end: 20150315

REACTIONS (1)
  - Hepatocellular carcinoma [Not Recovered/Not Resolved]

NARRATIVE: CASE EVENT DATE: 20171115
